FAERS Safety Report 6790597-9 (Version None)
Quarter: 2010Q2

REPORT INFORMATION
  Report Type: 
  Country: None (occurrence: None)
  Receive Date: 20100624
  Receipt Date: 20100618
  Transmission Date: 20101027
  Serious: Yes (Death)
  Sender: FDA-Public Use
  Company Number: PHHY2010US36491

PATIENT
  Sex: Male
  Weight: 75 kg

DRUGS (1)
  1. ZOMETA [Suspect]
     Dosage: 4 MG/5 ML

REACTIONS (1)
  - MALIGNANT NEOPLASM PROGRESSION [None]
